FAERS Safety Report 22268364 (Version 1)
Quarter: 2023Q2

REPORT INFORMATION
  Report Type: Spontaneous
  Country: US (occurrence: US)
  Receive Date: 20230430
  Receipt Date: 20230430
  Transmission Date: 20230722
  Serious: No
  Sender: FDA-Public Use
  Company Number: US-SA-SAC20230425000828

PATIENT
  Age: 69 Year
  Sex: Male

DRUGS (19)
  1. DUPIXENT [Suspect]
     Active Substance: DUPILUMAB
     Indication: Dermatitis atopic
     Dosage: 300 MG, QOW
     Route: 058
     Dates: start: 20230331
  2. ATORVASTATIN [Concomitant]
     Active Substance: ATORVASTATIN
     Dosage: UNK
  3. CLOBETASOL [Concomitant]
     Active Substance: CLOBETASOL
  4. CYCLOSPORINE [Concomitant]
     Active Substance: CYCLOSPORINE
  5. FLUOCINONIDE [Concomitant]
     Active Substance: FLUOCINONIDE
  6. IBUPROFEN [Concomitant]
     Active Substance: IBUPROFEN
  7. KENALOG [Concomitant]
     Active Substance: TRIAMCINOLONE ACETONIDE
  8. LOSARTAN POTASSIUM [Concomitant]
     Active Substance: LOSARTAN POTASSIUM
  9. MELATONIN [Concomitant]
     Active Substance: MELATONIN
  10. TACROLIMUS [Concomitant]
     Active Substance: TACROLIMUS
  11. TAMSULOSIN [Concomitant]
     Active Substance: TAMSULOSIN
  12. TROSPIUM CHLORIDE [Concomitant]
     Active Substance: TROSPIUM CHLORIDE
  13. VITAMIN D3 [Concomitant]
     Active Substance: CHOLECALCIFEROL
  14. GINGER [Concomitant]
     Active Substance: GINGER
  15. VITAMINS NOS [Concomitant]
     Active Substance: VITAMINS
     Dosage: UNK, QD
  16. HERBALS\TURMERIC [Concomitant]
     Active Substance: HERBALS\TURMERIC
  17. CYCLOSPORINE [Concomitant]
     Active Substance: CYCLOSPORINE
  18. IBUPROFEN [Concomitant]
     Active Substance: IBUPROFEN
  19. LOSARTAN POTASSIUM [Concomitant]
     Active Substance: LOSARTAN POTASSIUM

REACTIONS (1)
  - Weight increased [Unknown]
